FAERS Safety Report 13954249 (Version 1)
Quarter: 2017Q3

REPORT INFORMATION
  Report Type: Spontaneous
  Country: US (occurrence: None)
  Receive Date: 20170910
  Receipt Date: 20170910
  Transmission Date: 20171128
  Serious: No
  Sender: FDA-Public Use
  Company Number: None

PATIENT
  Age: 48 Year
  Sex: Female

DRUGS (1)
  1. LUPRON DEPOT [Suspect]
     Active Substance: LEUPROLIDE ACETATE
     Indication: ENDOMETRIOSIS
     Dosage: 11.25 MG, Q3MONTHS, IM
     Route: 030
     Dates: start: 20170419

REACTIONS (4)
  - Asthenia [None]
  - Arthralgia [None]
  - Hot flush [None]
  - Weight increased [None]

NARRATIVE: CASE EVENT DATE: 20170419
